FAERS Safety Report 6188912-2 (Version None)
Quarter: 2009Q2

REPORT INFORMATION
  Report Type: 
  Country: None (occurrence: None)
  Receive Date: 20090513
  Receipt Date: 20090513
  Transmission Date: 20091009
  Serious: Yes (Hospitalization, Other)
  Sender: FDA-Public Use
  Company Number: US-PFIZER INC-2009158194

PATIENT
  Sex: Female
  Weight: 73.016 kg

DRUGS (4)
  1. LYRICA [Suspect]
     Indication: NERVE INJURY
     Dosage: 50 MG, 2X/DAY
     Dates: start: 20081125, end: 20090109
  2. PREDNISONE [Concomitant]
  3. DILTIAZEM [Concomitant]
     Indication: HEART RATE IRREGULAR
  4. FLECAINIDE [Concomitant]

REACTIONS (7)
  - ACTIVITIES OF DAILY LIVING IMPAIRED [None]
  - BLOOD PRESSURE INCREASED [None]
  - BODY TEMPERATURE DECREASED [None]
  - DEHYDRATION [None]
  - DIZZINESS [None]
  - DYSSTASIA [None]
  - RASH [None]
